FAERS Safety Report 12214152 (Version 1)
Quarter: 2016Q1

REPORT INFORMATION
  Report Type: Spontaneous
  Country: US (occurrence: US)
  Receive Date: 20160328
  Receipt Date: 20160328
  Transmission Date: 20160526
  Serious: No
  Sender: FDA-Public Use
  Company Number: US-BAUSCH-BL-2015-011320

PATIENT
  Sex: Female

DRUGS (1)
  1. TRETINOIN. [Suspect]
     Active Substance: TRETINOIN
     Indication: ROSACEA
     Dosage: APPLIED ON FACE
     Route: 061

REACTIONS (3)
  - Off label use [Unknown]
  - Dry skin [Unknown]
  - Skin exfoliation [Unknown]
